FAERS Safety Report 18822413 (Version 1)
Quarter: 2021Q1

REPORT INFORMATION
  Report Type: Spontaneous
  Country: CN (occurrence: CN)
  Receive Date: 20210202
  Receipt Date: 20210202
  Transmission Date: 20210419
  Serious: Yes (Hospitalization)
  Sender: FDA-Public Use
  Company Number: CN-PFIZER INC-2021077449

PATIENT
  Age: 49 Year
  Sex: Female
  Weight: 54 kg

DRUGS (2)
  1. METHOTREXATE. [Suspect]
     Active Substance: METHOTREXATE
     Indication: CHEMOTHERAPY
     Dosage: 22 MG, 1X/DAY
     Route: 030
     Dates: start: 20201013, end: 20201225
  2. METHOTREXATE. [Suspect]
     Active Substance: METHOTREXATE
     Indication: NEOPLASM MALIGNANT

REACTIONS (6)
  - Lip ulceration [Recovering/Resolving]
  - Mouth ulceration [Recovering/Resolving]
  - Feeding disorder [Recovering/Resolving]
  - Skin ulcer [Recovering/Resolving]
  - Salivary hypersecretion [Recovering/Resolving]
  - Peptic ulcer [Recovering/Resolving]

NARRATIVE: CASE EVENT DATE: 20201228
